FAERS Safety Report 16025292 (Version 1)
Quarter: 2019Q1

REPORT INFORMATION
  Report Type: Spontaneous
  Country: US (occurrence: US)
  Receive Date: 20190301
  Receipt Date: 20190301
  Transmission Date: 20190418
  Serious: No
  Sender: FDA-Public Use
  Company Number: US-PFIZER INC-2019086398

PATIENT
  Age: 71 Year
  Sex: Female

DRUGS (2)
  1. SUTENT [Suspect]
     Active Substance: SUNITINIB MALATE
     Dosage: 37.5 MG, CYCLIC [TAKE 1 CAPSULE BY MOUTH DAILY FOR 14 DAYS THEN OFF FOR 7 DAYS]
     Route: 048
     Dates: start: 201902
  2. SUTENT [Suspect]
     Active Substance: SUNITINIB MALATE
     Indication: RENAL CANCER
     Dosage: UNK
     Dates: start: 2015

REACTIONS (9)
  - Diarrhoea [Unknown]
  - Dry mouth [Unknown]
  - Vaginal haemorrhage [Recovering/Resolving]
  - Dry skin [Unknown]
  - Hair texture abnormal [Unknown]
  - Stomatitis [Unknown]
  - Pain [Unknown]
  - Lip dry [Unknown]
  - Blood pressure abnormal [Unknown]
